FAERS Safety Report 20641059 (Version 3)
Quarter: 2022Q3

REPORT INFORMATION
  Report Type: Spontaneous
  Country: JP (occurrence: JP)
  Receive Date: 20220327
  Receipt Date: 20220929
  Transmission Date: 20221027
  Serious: Yes (Other)
  Sender: FDA-Public Use
  Company Number: JP-NOVARTISPH-NVSJ2021JP013243

PATIENT
  Sex: Female

DRUGS (4)
  1. GILENYA [Suspect]
     Active Substance: FINGOLIMOD HYDROCHLORIDE
     Indication: Multiple sclerosis
     Dosage: 0.5MG, Q72H
     Route: 048
     Dates: end: 20220103
  2. MAYZENT [Suspect]
     Active Substance: SIPONIMOD
     Indication: Secondary progressive multiple sclerosis
     Dosage: 1 MG
     Route: 048
     Dates: start: 20220104
  3. MAYZENT [Suspect]
     Active Substance: SIPONIMOD
     Dosage: 0.75 MG
     Route: 048
  4. MAYZENT [Suspect]
     Active Substance: SIPONIMOD
     Dosage: 0.5 MG
     Route: 048
     Dates: start: 20220802

REACTIONS (2)
  - Lymphocyte count decreased [Recovering/Resolving]
  - Product use issue [Unknown]
